FAERS Safety Report 6163956-5 (Version None)
Quarter: 2009Q2

REPORT INFORMATION
  Report Type: 
  Country: None (occurrence: None)
  Receive Date: 20090422
  Receipt Date: 20090410
  Transmission Date: 20091009
  Serious: Yes (Other)
  Sender: FDA-Public Use
  Company Number: IT-TEVA-191981ISR

PATIENT
  Sex: Female

DRUGS (1)
  1. SERTRALINE HCL [Suspect]

REACTIONS (1)
  - HOMICIDAL IDEATION [None]
